FAERS Safety Report 13178549 (Version 1)
Quarter: 2017Q1

REPORT INFORMATION
  Report Type: Spontaneous
  Country: US (occurrence: US)
  Receive Date: 20170201
  Receipt Date: 20170201
  Transmission Date: 20170428
  Serious: Yes (Other)
  Sender: FDA-Public Use
  Company Number: None

PATIENT
  Age: 2 Year
  Sex: Male
  Weight: 12.15 kg

DRUGS (1)
  1. AMOXICILLIAN [Suspect]
     Active Substance: AMOXICILLIN
     Indication: SINUSITIS
     Route: 048
     Dates: start: 20161031, end: 20161108

REACTIONS (1)
  - Rash generalised [None]

NARRATIVE: CASE EVENT DATE: 20161108
